FAERS Safety Report 8175942-4 (Version None)
Quarter: 2012Q1

REPORT INFORMATION
  Report Type: 
  Country: None (occurrence: None)
  Receive Date: 20120301
  Receipt Date: 20120227
  Transmission Date: 20120608
  Serious: Yes (Other)
  Sender: FDA-Public Use
  Company Number: US-PFIZER INC-2012052022

PATIENT

DRUGS (2)
  1. WARFARIN [Concomitant]
     Dosage: UNK
     Route: 048
  2. TIKOSYN [Suspect]
     Dosage: UNK
     Route: 048

REACTIONS (1)
  - RESPIRATORY TRACT INFECTION [None]
